FAERS Safety Report 6978296-1 (Version None)
Quarter: 2010Q3

REPORT INFORMATION
  Report Type: 
  Country: None (occurrence: None)
  Receive Date: 20100913
  Receipt Date: 20100831
  Transmission Date: 20110219
  Serious: No
  Sender: FDA-Public Use
  Company Number: US-B.I. PHARMACEUTICALS,INC./RIDGEFIELD-2010-BP-09852BP

PATIENT
  Age: 61 Year
  Sex: Male

DRUGS (11)
  1. SPIRIVA [Suspect]
     Indication: PNEUMONIA
     Dates: start: 20100501, end: 20100803
  2. BROVANA [Suspect]
     Indication: PNEUMONIA
     Route: 055
     Dates: start: 20100501, end: 20100803
  3. BROVANA [Suspect]
     Indication: CHRONIC OBSTRUCTIVE PULMONARY DISEASE
  4. ZOLOFT [Concomitant]
  5. TAMSULOSIN HCL [Concomitant]
  6. LISINOPRIL [Concomitant]
  7. TRAZODONE HCL [Concomitant]
  8. NAPROXEN [Concomitant]
  9. FENTANYL CITRATE [Concomitant]
  10. OXYCODONE [Concomitant]
  11. LUNESTA [Concomitant]

REACTIONS (2)
  - DRY MOUTH [None]
  - GINGIVAL EROSION [None]
